FAERS Safety Report 4396344-2 (Version None)
Quarter: 2004Q2

REPORT INFORMATION
  Report Type: 
  Country: None (occurrence: None)
  Receive Date: 20040621
  Receipt Date: 20031112
  Transmission Date: 20050107
  Serious: Yes (Death)
  Sender: FDA-Public Use
  Company Number: USA-2003-0010931

PATIENT
  Age: 48 Year
  Sex: Male
  Weight: 77.1 kg

DRUGS (4)
  1. OXYCONTIN [Suspect]
     Indication: PAIN
     Dosage: 80 MG, Q12H
  2. HEROIN (DIAMORPHINE) [Suspect]
  3. METAMFETAMINE (METAMFETAMINE) [Suspect]
  4. SOMA [Suspect]
     Indication: PAIN
     Dosage: 350 MG, QID

REACTIONS (2)
  - DRUG ABUSER [None]
  - MULTIPLE DRUG OVERDOSE [None]
